FAERS Safety Report 8982115 (Version 3)
Quarter: 2013Q2

REPORT INFORMATION
  Report Type: Spontaneous
  Country: CA (occurrence: CA)
  Receive Date: 20121222
  Receipt Date: 20130402
  Transmission Date: 20140414
  Serious: Yes (Other)
  Sender: FDA-Public Use
  Company Number: CA-AMGEN-CANSP2012061740

PATIENT
  Age: 68 Year
  Sex: Female
  Weight: 61.36 kg

DRUGS (3)
  1. PROLIA [Suspect]
     Indication: OSTEOPOROSIS
     Dosage: 60 MG, UNK
     Dates: start: 20120416
  2. COUMADIN                           /00014802/ [Concomitant]
     Dosage: UNK
  3. TYLENOL /00020001/ [Concomitant]
     Indication: PAIN
     Dosage: UNK

REACTIONS (2)
  - Periarthritis [Not Recovered/Not Resolved]
  - Intraocular pressure increased [Not Recovered/Not Resolved]
